FAERS Safety Report 18779974 (Version 1)
Quarter: 2021Q1

REPORT INFORMATION
  Report Type: Spontaneous
  Country: US (occurrence: US)
  Receive Date: 20210125
  Receipt Date: 20210125
  Transmission Date: 20210419
  Serious: Yes (Other)
  Sender: FDA-Public Use
  Company Number: US-PFIZER INC-2021045312

PATIENT
  Age: 65 Year
  Sex: Male

DRUGS (1)
  1. INLYTA [Suspect]
     Active Substance: AXITINIB
     Dosage: 5 MG
     Dates: start: 20200328

REACTIONS (3)
  - Fatigue [Not Recovered/Not Resolved]
  - Diarrhoea [Unknown]
  - COVID-19 pneumonia [Unknown]

NARRATIVE: CASE EVENT DATE: 202010
